FAERS Safety Report 5788985-2 (Version None)
Quarter: 2008Q2

REPORT INFORMATION
  Report Type: 
  Country: None (occurrence: None)
  Receive Date: 20080626
  Receipt Date: 20080118
  Transmission Date: 20081010
  Serious: No
  Sender: FDA-Public Use
  Company Number: US-ASTRAZENECA-2007UW27234

PATIENT
  Age: 85 Year
  Sex: Female
  Weight: 81.6 kg

DRUGS (14)
  1. PULMICORT FLEXHALER [Suspect]
     Indication: ASTHMA
     Route: 055
  2. FOSINOPRIL SODIUM [Concomitant]
  3. MAXZIDE [Concomitant]
  4. VENALAR [Concomitant]
  5. SIMVASTATIN [Concomitant]
  6. SINGULAIR [Concomitant]
  7. BENADRYL [Concomitant]
  8. ALBUTEROL [Concomitant]
  9. VALIUM [Concomitant]
  10. PREMARIN [Concomitant]
  11. ASPIRIN [Concomitant]
  12. VITAMINS [Concomitant]
  13. TYLENOL [Concomitant]
  14. ALLERGY IMMUNOTHERAPY [Concomitant]

REACTIONS (10)
  - ANXIETY [None]
  - BURNING SENSATION [None]
  - CHEST PAIN [None]
  - LIP DRY [None]
  - MALAISE [None]
  - MUSCULOSKELETAL DISCOMFORT [None]
  - NERVOUSNESS [None]
  - ORAL DISCOMFORT [None]
  - SALIVARY HYPERSECRETION [None]
  - THROAT IRRITATION [None]
